FAERS Safety Report 8545092-3 (Version None)
Quarter: 2012Q3

REPORT INFORMATION
  Report Type: 
  Country: None (occurrence: None)
  Receive Date: 20120727
  Receipt Date: 20120724
  Transmission Date: 20120928
  Serious: Yes (Hospitalization, Other)
  Sender: FDA-Public Use
  Company Number: US-AMGEN-USACT2012039156

PATIENT
  Age: 54 Year
  Sex: Female
  Weight: 73.45 kg

DRUGS (32)
  1. TIZANIDINE HYDROCHLORIDE [Concomitant]
     Dosage: 2 MG, UNK
     Route: 048
     Dates: start: 20060101
  2. HYDROCODONE BITARTRATE AND ACETAMINOPHEN [Concomitant]
     Indication: PAIN
     Dosage: UNK UNK, PRN
     Route: 048
     Dates: start: 20120104
  3. CLONIDINE [Concomitant]
     Dosage: UNK
     Route: 048
     Dates: start: 20060101
  4. SERTRALINE HYDROCHLORIDE [Concomitant]
     Dosage: 50 MG, UNK
     Route: 048
     Dates: start: 20070101
  5. AMLODIPINE [Concomitant]
     Dosage: 10 MG, UNK
     Route: 048
     Dates: start: 20060101
  6. BYSTOLIC [Concomitant]
     Dosage: 10 MG, BID
     Route: 048
     Dates: start: 20060101
  7. CYCLOBENAZPRINE [Concomitant]
     Dosage: 10 MG, TID
     Route: 048
     Dates: start: 20060101
  8. DIFLUCAN [Concomitant]
     Dosage: UNK
     Route: 048
  9. DENOSUMAB [Suspect]
     Indication: BREAST CANCER
     Dosage: 120 ML, UNK
     Route: 058
     Dates: start: 20120305
  10. CLINDAMYCIN [Concomitant]
     Dosage: 300 MG, TID
     Route: 048
     Dates: start: 20120402, end: 20120416
  11. CALCIUM CARBONATE [Concomitant]
     Dosage: 500 MG, UNK
     Route: 048
     Dates: start: 20120305
  12. ZOFRAN [Concomitant]
     Indication: VOMITING
  13. AMLODIPINE BESYLATE AND VALSARTAN [Concomitant]
  14. PROMETHAZINE [Concomitant]
     Indication: NAUSEA
     Dosage: UNK UNK, PRN
  15. DEXAMETHASONE [Concomitant]
     Dosage: 10 MG, UNK
     Route: 042
     Dates: start: 20120304
  16. VORICONAZOLE [Concomitant]
  17. PROMETHAZINE [Concomitant]
     Indication: VOMITING
  18. CALCIUM WITH VITAMIN D [Concomitant]
  19. ATIVAN [Concomitant]
     Indication: INSOMNIA
     Dosage: UNK UNK, PRN
  20. PALONOSETRON [Concomitant]
     Dosage: 0.25 MG, UNK
     Route: 042
     Dates: start: 20120305
  21. COMPAZINE [Concomitant]
     Dosage: 25 MG, UNK
     Dates: start: 20120305
  22. VALTREX [Concomitant]
     Dosage: 1000 MG, UNK
     Route: 048
     Dates: start: 20120402, end: 20120416
  23. AMITRIPTYLINE HYDROCHLORIDE [Concomitant]
     Dosage: 20 MG, QHS
     Route: 048
     Dates: start: 20070101
  24. METHADONE HYDROCHLORIDE [Concomitant]
     Dosage: 10 MG, UNK
     Route: 048
     Dates: start: 20060101
  25. ADVIL [Concomitant]
     Dosage: UNK UNK, PRN
  26. VITAMIN D [Concomitant]
     Dosage: 5000 IU, UNK
     Route: 048
     Dates: start: 20120305
  27. NYSTATIN [Concomitant]
     Dosage: UNK UNK, QID
  28. NEULASTA [Concomitant]
     Dosage: UNK
     Dates: start: 20120619
  29. ROCEPHIN [Concomitant]
     Dosage: 2 G, UNK
     Route: 042
     Dates: start: 20120402, end: 20120402
  30. ZOFRAN [Concomitant]
     Indication: NAUSEA
     Dosage: 4 MG, PRN
     Route: 042
  31. PROTONIX [Concomitant]
     Dosage: 40 MG, UNK
     Route: 048
     Dates: start: 20120402
  32. TYLENOL [Concomitant]
     Indication: BODY TEMPERATURE INCREASED
     Dosage: UNK UNK, PRN

REACTIONS (2)
  - FEBRILE NEUTROPENIA [None]
  - HYPOCALCAEMIA [None]
